FAERS Safety Report 10079030 (Version 1)
Quarter: 2014Q2

REPORT INFORMATION
  Report Type: Spontaneous
  Country: JP (occurrence: JP)
  Receive Date: 20140415
  Receipt Date: 20140415
  Transmission Date: 20141212
  Serious: Yes (Other)
  Sender: FDA-Public Use
  Company Number: JP-SA-2014SA044386

PATIENT
  Age: 37 Year
  Sex: Female
  Weight: 49 kg

DRUGS (8)
  1. ZOLPIDEM [Suspect]
     Indication: INSOMNIA
     Route: 048
  2. ANEXATE [Suspect]
     Indication: REVERSAL OF SEDATION
     Route: 042
     Dates: start: 20140123, end: 20140123
  3. ANEXATE [Suspect]
     Indication: SEDATIVE THERAPY
     Route: 042
     Dates: start: 20140123, end: 20140123
  4. DORMICUM [Suspect]
     Indication: SEDATIVE THERAPY
     Route: 042
     Dates: start: 20140123, end: 20140123
  5. ERIMIN [Suspect]
     Indication: PRODUCT USED FOR UNKNOWN INDICATION
     Route: 048
  6. MEILAX [Suspect]
     Indication: PRODUCT USED FOR UNKNOWN INDICATION
     Route: 048
  7. EVAMYL [Suspect]
     Indication: PRODUCT USED FOR UNKNOWN INDICATION
     Route: 048
  8. REFLEX [Suspect]
     Indication: PRODUCT USED FOR UNKNOWN INDICATION
     Route: 048

REACTIONS (2)
  - Facial spasm [Recovered/Resolved]
  - Off label use [Unknown]
